FAERS Safety Report 15815148 (Version 1)
Quarter: 2019Q1

REPORT INFORMATION
  Report Type: Spontaneous
  Country: GB (occurrence: GB)
  Receive Date: 20190112
  Receipt Date: 20190112
  Transmission Date: 20190417
  Serious: Yes (Disabling)
  Sender: FDA-Public Use
  Company Number: GB-ACCORD-101144

PATIENT
  Age: 84 Year
  Sex: Female

DRUGS (8)
  1. FUROSEMIDE. [Suspect]
     Active Substance: FUROSEMIDE
     Indication: PRODUCT USED FOR UNKNOWN INDICATION
     Route: 048
     Dates: start: 19930725, end: 20180222
  2. ATORVASTATIN [Concomitant]
     Active Substance: ATORVASTATIN
  3. MEPACRINE/MEPACRINE HYDROCHLORIDE [Concomitant]
  4. RAMIPRIL. [Concomitant]
     Active Substance: RAMIPRIL
  5. CLOPIDOGREL [Concomitant]
     Active Substance: CLOPIDOGREL BISULFATE
  6. SERTRALINE/SERTRALINE HYDROCHLORIDE [Concomitant]
  7. ALLOPURINOL. [Concomitant]
     Active Substance: ALLOPURINOL
  8. CETIRIZINE [Concomitant]
     Active Substance: CETIRIZINE HYDROCHLORIDE

REACTIONS (1)
  - Eczema [Recovered/Resolved]

NARRATIVE: CASE EVENT DATE: 20170105
